FAERS Safety Report 8182104-3 (Version None)
Quarter: 2012Q1

REPORT INFORMATION
  Report Type: 
  Country: None (occurrence: None)
  Receive Date: 20120302
  Receipt Date: 20120224
  Transmission Date: 20120608
  Serious: Yes (Hospitalization)
  Sender: FDA-Public Use
  Company Number: PHHY2012AR016108

PATIENT
  Sex: Male

DRUGS (1)
  1. ONBREZ [Suspect]
     Indication: BRONCHITIS CHRONIC
     Dosage: 1 DF, QD
     Dates: start: 20110301

REACTIONS (2)
  - BLINDNESS UNILATERAL [None]
  - RETINAL INFARCTION [None]
